FAERS Safety Report 24463295 (Version 1)
Quarter: 2024Q4

REPORT INFORMATION
  Report Type: Report from Study
  Country: US (occurrence: US)
  Receive Date: 20241018
  Receipt Date: 20241018
  Transmission Date: 20250115
  Serious: No
  Sender: ROCHE
  Company Number: US-ROCHE-2883701

PATIENT
  Age: 77 Year
  Sex: Female

DRUGS (1)
  1. XOLAIR [Suspect]
     Active Substance: OMALIZUMAB
     Indication: Idiopathic urticaria
     Dosage: ONE IN EACH ARM, 5MG EACH ARM
     Route: 065

REACTIONS (3)
  - Mass [Unknown]
  - Gait disturbance [Unknown]
  - Hypoacusis [Not Recovered/Not Resolved]
